FAERS Safety Report 19007195 (Version 1)
Quarter: 2021Q1

REPORT INFORMATION
  Report Type: Spontaneous
  Country: GB (occurrence: GB)
  Receive Date: 20210315
  Receipt Date: 20210315
  Transmission Date: 20210420
  Serious: Yes (Other)
  Sender: FDA-Public Use
  Company Number: GB-TEVA-2021-GB-1888983

PATIENT
  Age: 33 Year
  Sex: Female
  Weight: 65 kg

DRUGS (9)
  1. GLUCOSE [Concomitant]
     Active Substance: DEXTROSE
     Indication: ILL-DEFINED DISORDER
     Dosage: USE AS DIRECTED
     Dates: start: 20200706
  2. DOXYCYCLINE. [Suspect]
     Active Substance: DOXYCYCLINE
     Indication: ACNE
     Dosage: 1 DOSAGE FORMS DAILY;
     Dates: start: 20210222
  3. ADAPALENE. [Concomitant]
     Active Substance: ADAPALENE
     Indication: ILL-DEFINED DISORDER
     Dosage: APPLY ONCE DAILY
     Dates: start: 20210222
  4. FERROUS FUMARATE [Concomitant]
     Active Substance: FERROUS FUMARATE
     Indication: ILL-DEFINED DISORDER
     Dosage: TAKE ONE TABLET THREE TIMES A DAY
     Dates: start: 20210224
  5. BENZOYL PEROXIDE. [Concomitant]
     Active Substance: BENZOYL PEROXIDE
     Indication: ILL-DEFINED DISORDER
     Dosage: APPLY THINLY ONCE DAILY IN THE EVENING
     Dates: start: 20210301
  6. NIFEDIPINE. [Concomitant]
     Active Substance: NIFEDIPINE
     Indication: ILL-DEFINED DISORDER
     Dosage: TAKE ONE 3 TIMES/DAY
     Dates: start: 20210225
  7. NOVORAPID [Concomitant]
     Active Substance: INSULIN ASPART
     Indication: ILL-DEFINED DISORDER
     Dosage: 8/14/10?12
     Dates: start: 20200706
  8. GLUCAGON. [Concomitant]
     Active Substance: GLUCAGON
     Indication: ILL-DEFINED DISORDER
     Dosage: USE AS DIRECTED
     Dates: start: 20200706
  9. TOUJEO [Concomitant]
     Active Substance: INSULIN GLARGINE
     Indication: ILL-DEFINED DISORDER
     Dosage: USE AS DIRECTED BY YOUR DIABETIC SPECIALIST ONC...
     Dates: start: 20200706

REACTIONS (2)
  - Eye pain [Recovering/Resolving]
  - Eye swelling [Recovering/Resolving]

NARRATIVE: CASE EVENT DATE: 20210225
